FAERS Safety Report 11748798 (Version 1)
Quarter: 2015Q4

REPORT INFORMATION
  Report Type: Report from Study
  Country: US (occurrence: US)
  Receive Date: 20151118
  Receipt Date: 20151118
  Transmission Date: 20160304
  Serious: Yes (Hospitalization)
  Sender: FDA-Public Use
  Company Number: US-AMGEN-USASL2015119967

PATIENT
  Age: 51 Year
  Sex: Female

DRUGS (1)
  1. ENBREL [Suspect]
     Active Substance: ETANERCEPT
     Indication: RHEUMATOID ARTHRITIS
     Dosage: 50 MG, QWK
     Route: 065
     Dates: start: 20140420

REACTIONS (17)
  - Inappropriate schedule of drug administration [Unknown]
  - Asthenia [Unknown]
  - Urinary incontinence [Unknown]
  - Swelling [Unknown]
  - Migraine [Unknown]
  - Renal impairment [Unknown]
  - Injection site haemorrhage [Unknown]
  - Injection site pain [Unknown]
  - Peripheral swelling [Unknown]
  - Condition aggravated [Unknown]
  - Injection site extravasation [Unknown]
  - Injection site mass [Recovered/Resolved]
  - Malaise [Unknown]
  - Nausea [Unknown]
  - Cystitis [Unknown]
  - Mobility decreased [Unknown]
  - Feeling abnormal [Unknown]

NARRATIVE: CASE EVENT DATE: 2014
